FAERS Safety Report 21926138 (Version 2)
Quarter: 2023Q1

REPORT INFORMATION
  Report Type: Spontaneous
  Country: US (occurrence: US)
  Receive Date: 20230130
  Receipt Date: 20230203
  Transmission Date: 20230417
  Serious: No
  Sender: FDA-Public Use
  Company Number: US-BIOVITRUM-2023US00867

PATIENT
  Age: 73 Year
  Sex: Female

DRUGS (18)
  1. KINERET [Suspect]
     Active Substance: ANAKINRA
     Indication: Rheumatoid arthritis
     Dosage: 100 MG UNDER THE SKIN ONCE DAILY
     Dates: start: 20221027
  2. KINERET [Suspect]
     Active Substance: ANAKINRA
     Dates: start: 20221031
  3. KINERET [Suspect]
     Active Substance: ANAKINRA
     Dates: end: 20230120
  4. OMEPRAZOLE [Concomitant]
     Active Substance: OMEPRAZOLE
  5. ASPIRIN [Concomitant]
     Active Substance: ASPIRIN
  6. NORVASC [Concomitant]
     Active Substance: AMLODIPINE BESYLATE
  7. VITAMIN D3 [Concomitant]
     Active Substance: CHOLECALCIFEROL
  8. FOLIC ACID [Concomitant]
     Active Substance: FOLIC ACID
  9. DEPAKOTE ER [Concomitant]
     Active Substance: DIVALPROEX SODIUM
  10. CARVEDILOL [Concomitant]
     Active Substance: CARVEDILOL
  11. HYDRALAZINE [Concomitant]
     Active Substance: HYDRALAZINE HYDROCHLORIDE
  12. HYDROCHLOROTHIAZIDE [Concomitant]
     Active Substance: HYDROCHLOROTHIAZIDE
  13. VALSARTAR [Concomitant]
  14. PROBIOTICS NOS [Concomitant]
     Active Substance: PROBIOTICS NOS
  15. NORCO [Concomitant]
     Active Substance: ACETAMINOPHEN\HYDROCODONE BITARTRATE
  16. VITAMIN C [Concomitant]
     Active Substance: ASCORBIC ACID
  17. XANAX [Concomitant]
     Active Substance: ALPRAZOLAM
  18. METHOCARBAMOL [Concomitant]
     Active Substance: METHOCARBAMOL

REACTIONS (6)
  - Pain [Unknown]
  - Chest pain [Unknown]
  - Blood pressure increased [Recovered/Resolved]
  - Hypotension [Unknown]
  - Injection site nodule [Recovered/Resolved]
  - Injection site pruritus [Recovered/Resolved]

NARRATIVE: CASE EVENT DATE: 20230116
